APPROVED DRUG PRODUCT: VORICONAZOLE
Active Ingredient: VORICONAZOLE
Strength: 200MG/VIAL
Dosage Form/Route: POWDER;INTRAVENOUS
Application: A206398 | Product #001
Applicant: ALMAJECT INC
Approved: Mar 23, 2016 | RLD: No | RS: No | Type: DISCN